FAERS Safety Report 5065289-7 (Version None)
Quarter: 2006Q3

REPORT INFORMATION
  Report Type: 
  Country: None (occurrence: None)
  Receive Date: 20060725
  Receipt Date: 20060714
  Transmission Date: 20061208
  Serious: Yes (Hospitalization)
  Sender: FDA-Public Use
  Company Number: L06-ESP-02866-01

PATIENT
  Age: 36 Year
  Sex: Male

DRUGS (8)
  1. CARBAMAZEPINE [Suspect]
     Indication: CONVULSION
     Dosage: 400 MG TID
  2. CARBAMAZEPINE [Suspect]
     Indication: CONVULSION
     Dosage: 200 MG TID
  3. RITONAVIR [Suspect]
     Indication: HIV INFECTION
     Dosage: 300 BID
  4. NELFINAVIR [Suspect]
     Indication: HIV INFECTION
     Dosage: 1000 MG BID
  5. PHENYTOIN [Concomitant]
  6. PHENOBARBITAL TAB [Concomitant]
  7. SAQUINAVIR [Concomitant]
  8. NEVIRAPINE [Concomitant]

REACTIONS (10)
  - ALCOHOLISM [None]
  - COORDINATION ABNORMAL [None]
  - DIPLOPIA [None]
  - DISEASE RECURRENCE [None]
  - DISORIENTATION [None]
  - DRUG INTERACTION INHIBITION [None]
  - DRUG TOXICITY [None]
  - SOMNOLENCE [None]
  - TREATMENT NONCOMPLIANCE [None]
  - VERTIGO [None]
